FAERS Safety Report 5530515-4 (Version None)
Quarter: 2007Q4

REPORT INFORMATION
  Report Type: 
  Country: None (occurrence: None)
  Receive Date: 20071119
  Receipt Date: 20070809
  Transmission Date: 20080405
  Serious: No
  Sender: FDA-Public Use
  Company Number: TPA2007A01682

PATIENT
  Age: 44 Year
  Sex: Female
  Weight: 68.9467 kg

DRUGS (4)
  1. ROZEREM [Suspect]
     Indication: INITIAL INSOMNIA
     Dosage: 8 MG, QHS, PER ORAL
     Route: 048
     Dates: start: 20070401, end: 20070401
  2. MEDICINAL MARIJUANA (CANNABIS SATIVA) [Concomitant]
  3. UNKNOWN PAIN MEDICATIONS (ALL OTHER THERAPEUTIC PRODUCTS) [Concomitant]
  4. UNKNOWN SMOKING PATCH (ANTI-SMOKING AGENTS) [Concomitant]

REACTIONS (4)
  - BONE DISORDER [None]
  - FEELING ABNORMAL [None]
  - MIGRAINE [None]
  - OSTEOPOROSIS [None]
